FAERS Safety Report 21696910 (Version 1)
Quarter: 2022Q4

REPORT INFORMATION
  Report Type: Spontaneous
  Country: FR (occurrence: FR)
  Receive Date: 20221208
  Receipt Date: 20221208
  Transmission Date: 20230113
  Serious: Yes (Death, Other)
  Sender: FDA-Public Use
  Company Number: None

PATIENT
  Age: 95 Year
  Sex: Male

DRUGS (1)
  1. OPDIVO [Suspect]
     Active Substance: NIVOLUMAB
     Indication: Malignant melanoma
     Route: 042
     Dates: start: 20221010, end: 20221024

REACTIONS (3)
  - Myocarditis [Fatal]
  - Muscular weakness [Fatal]
  - Idiopathic inflammatory myopathy [Fatal]

NARRATIVE: CASE EVENT DATE: 20221116
